FAERS Safety Report 6202683-2 (Version None)
Quarter: 2009Q2

REPORT INFORMATION
  Report Type: 
  Country: None (occurrence: None)
  Receive Date: 20090519
  Receipt Date: 20090503
  Transmission Date: 20091009
  Serious: Yes (Life-Threatening)
  Sender: FDA-Public Use
  Company Number: GB-DEXCELPHARM-20090652

PATIENT
  Age: 69 Year
  Sex: Male

DRUGS (9)
  1. OMEPRAZOLE [Suspect]
     Indication: GASTROINTESTINAL HAEMORRHAGE
     Dosage: 40 MG MILLIGRAM (S) INTRAVENOUS (NOT OTHERWISE SPECIFIED)
     Route: 042
     Dates: start: 20090314, end: 20090317
  2. HEPARIN [Suspect]
     Indication: ACUTE MYOCARDIAL INFARCTION
     Dosage: 2500 IU INTERNATIONAL UNIT (S) SUBCUTANEOUS
     Route: 058
  3. BISOPROLOL FUMARATE [Concomitant]
  4. CLOPIDOGREL HYDROGEN SULPHATE [Concomitant]
  5. FRUSEMIDE [Concomitant]
  6. ISOSORBIDE MONONITRATE [Concomitant]
  7. NICORANDIL [Concomitant]
  8. RAMIPRIL [Concomitant]
  9. SIMVASTATIN [Concomitant]

REACTIONS (3)
  - CARDIAC FAILURE [None]
  - MYOCARDIAL INFARCTION [None]
  - THROMBOCYTOPENIA [None]
